FAERS Safety Report 7586689-7 (Version None)
Quarter: 2011Q3

REPORT INFORMATION
  Report Type: 
  Country: None (occurrence: None)
  Receive Date: 20110701
  Receipt Date: 20110627
  Transmission Date: 20111222
  Serious: Yes (Hospitalization)
  Sender: FDA-Public Use
  Company Number: DE-BRISTOL-MYERS SQUIBB COMPANY-15856545

PATIENT
  Age: 61 Year
  Sex: Male

DRUGS (3)
  1. CISPLATIN [Suspect]
     Indication: OESOPHAGEAL CARCINOMA
     Dosage: MOST RECDENT DOSE ON 17JUN2011.
     Route: 042
     Dates: start: 20110527
  2. DOCETAXEL [Suspect]
     Indication: OESOPHAGEAL CARCINOMA
     Dosage: DOCETAXEL  IV INFUSION.MOST RECDENT DOSE ON 17JUN2011.
     Route: 042
     Dates: start: 20110527
  3. CETUXIMAB [Suspect]
     Indication: OESOPHAGEAL CARCINOMA
     Dosage: MOST RECDENT DOSE ON 17JUN2011.CETUXIMAB  IVV INFUSION
     Route: 042
     Dates: start: 20110527, end: 20110617

REACTIONS (3)
  - DYSGEUSIA [None]
  - DIARRHOEA [None]
  - DECREASED APPETITE [None]
